FAERS Safety Report 17868323 (Version 2)
Quarter: 2020Q3

REPORT INFORMATION
  Report Type: Report from Study
  Country: None (occurrence: US)
  Receive Date: 20200606
  Receipt Date: 20200729
  Transmission Date: 20201103
  Serious: Yes (Other)
  Sender: FDA-Public Use
  Company Number: US-ABBVIE-20K-163-3363381-00

PATIENT
  Age: 67 Year
  Sex: Female

DRUGS (2)
  1. HUMIRA [Suspect]
     Active Substance: ADALIMUMAB
     Indication: PSORIASIS
  2. HUMIRA [Suspect]
     Active Substance: ADALIMUMAB
     Indication: PSORIASIS
     Dosage: CITRATE FREE
     Route: 058
     Dates: start: 20161219

REACTIONS (11)
  - Memory impairment [Not Recovered/Not Resolved]
  - Herpes zoster [Recovered/Resolved]
  - Brain injury [Recovering/Resolving]
  - Nausea [Unknown]
  - Moyamoya disease [Recovering/Resolving]
  - Sinus congestion [Recovering/Resolving]
  - Headache [Unknown]
  - Social anxiety disorder [Not Recovered/Not Resolved]
  - Dehydration [Unknown]
  - Cerebral haemorrhage [Recovered/Resolved]
  - Pyrexia [Unknown]

NARRATIVE: CASE EVENT DATE: 2019
